FAERS Safety Report 9590661 (Version 1)
Quarter: 2013Q4

REPORT INFORMATION
  Report Type: Spontaneous
  Country: US (occurrence: US)
  Receive Date: 20131003
  Receipt Date: 20131003
  Transmission Date: 20140711
  Serious: No
  Sender: FDA-Public Use
  Company Number: US-AMGEN-USASP2012075245

PATIENT
  Age: 75 Year
  Sex: Female
  Weight: 62.59 kg

DRUGS (14)
  1. ENBREL [Suspect]
     Indication: RHEUMATOID ARTHRITIS
     Dosage: 50 MG, WEEKLY
     Route: 058
  2. PANTOPRAZOLE [Concomitant]
     Dosage: 20 MG, UNK
  3. FUROSEMID                          /00032601/ [Concomitant]
     Dosage: 20 MG, UNK
  4. ZYRTEC [Concomitant]
     Dosage: 5 MG, UNK
  5. NASONEX [Concomitant]
     Dosage: 50 MCG/AC
  6. SIMVASTATIN [Concomitant]
     Dosage: 5 MG, UNK
  7. METOPROLOL TARTRATE [Concomitant]
     Dosage: 25 MG, UNK
  8. MULTIVITAMINS, PLAIN [Concomitant]
     Dosage: UNK
  9. SPIRIVA HANDIHALER [Concomitant]
     Dosage: UNK
  10. CALCIUM [Concomitant]
     Dosage: 500 UNK, UNK
  11. FOLIC ACID [Concomitant]
     Dosage: UNK
  12. VITAMIN D3 [Concomitant]
     Dosage: UNK
  13. MUCINEX FAST MAX COLD + SINUS [Concomitant]
     Dosage: UNK
  14. HUMIRA [Concomitant]
     Dosage: 40 MG, UNK

REACTIONS (1)
  - Oropharyngeal pain [Unknown]
